FAERS Safety Report 10509081 (Version 3)
Quarter: 2014Q4

REPORT INFORMATION
  Report Type: Spontaneous
  Country: JP (occurrence: JP)
  Receive Date: 20141009
  Receipt Date: 20141104
  Transmission Date: 20150528
  Serious: Yes (Hospitalization, Other)
  Sender: FDA-Public Use
  Company Number: JP-PFIZER INC-2014273996

PATIENT
  Age: 64 Year
  Sex: Female

DRUGS (6)
  1. AZULFIDINE EN-TABS [Suspect]
     Active Substance: SULFASALAZINE
     Indication: RHEUMATOID ARTHRITIS
  2. EDIROL [Concomitant]
     Active Substance: ELDECALCITOL
     Dosage: 0.75 UG, DAILY
     Route: 048
     Dates: start: 20140131
  3. RINLAXER [Concomitant]
     Active Substance: CHLORPHENESIN CARBAMATE
     Dosage: 2 DF, DAILY
     Route: 048
     Dates: start: 20100412
  4. LOXONIN [Concomitant]
     Active Substance: LOXOPROFEN SODIUM
     Dosage: 120 MG, DAILY
     Route: 048
     Dates: start: 20100412
  5. AZULFIDINE EN-TABS [Suspect]
     Active Substance: SULFASALAZINE
     Indication: SPONDYLITIS
     Dosage: 1000 MG, DAILY
     Route: 048
     Dates: start: 20140808, end: 20140913
  6. REBAMIPIDE [Concomitant]
     Active Substance: REBAMIPIDE
     Dosage: 200 MG, DAILY
     Route: 048
     Dates: start: 20100412

REACTIONS (2)
  - Hepatitis acute [Recovered/Resolved]
  - Blood pressure decreased [Unknown]

NARRATIVE: CASE EVENT DATE: 20140913
